FAERS Safety Report 8305698-3 (Version None)
Quarter: 2012Q2

REPORT INFORMATION
  Report Type: 
  Country: None (occurrence: None)
  Receive Date: 20120423
  Receipt Date: 20120413
  Transmission Date: 20120825
  Serious: Yes (Other)
  Sender: FDA-Public Use
  Company Number: CA-JNJFOC-20120406998

PATIENT
  Sex: Female

DRUGS (5)
  1. CELEBREX [Concomitant]
  2. OTHER THERAPEUTIC MEDICATIONS [Concomitant]
  3. SIMPONI [Suspect]
     Indication: RHEUMATOID ARTHRITIS
     Route: 058
  4. MULTI-VITAMINS [Concomitant]
  5. ARAVA [Concomitant]

REACTIONS (3)
  - SUBCUTANEOUS ABSCESS [None]
  - EYE SWELLING [None]
  - INAPPROPRIATE SCHEDULE OF DRUG ADMINISTRATION [None]
